FAERS Safety Report 22350111 (Version 2)
Quarter: 2023Q2

REPORT INFORMATION
  Report Type: Spontaneous
  Country: US (occurrence: US)
  Receive Date: 20230522
  Receipt Date: 20230612
  Transmission Date: 20230722
  Serious: No
  Sender: FDA-Public Use
  Company Number: US-BAYER-2023A067219

PATIENT
  Age: 89 Year
  Sex: Female

DRUGS (1)
  1. MIRALAX [Suspect]
     Active Substance: POLYETHYLENE GLYCOL 3350
     Indication: Constipation
     Dosage: 1 CAPFUL DOSE
     Route: 048
     Dates: start: 20230503, end: 20230511

REACTIONS (4)
  - Therapeutic product effect delayed [Unknown]
  - Incorrect product administration duration [Unknown]
  - Urinary tract infection [None]
  - Diarrhoea [None]
